FAERS Safety Report 4417727-8 (Version None)
Quarter: 2004Q3

REPORT INFORMATION
  Report Type: 
  Country: None (occurrence: None)
  Receive Date: 20040803
  Receipt Date: 20040719
  Transmission Date: 20050211
  Serious: Yes (Other)
  Sender: FDA-Public Use
  Company Number: C-04-0042

PATIENT
  Age: 37 Year
  Sex: Female
  Weight: 63.5036 kg

DRUGS (1)
  1. LIDOCAINE HYDROCHLORIDE [Suspect]
     Indication: PHARYNGOLARYNGEAL PAIN
     Dosage: 2-3 DOSES AROUND THE WEEK OF JUNE 28, SWISH AND SPIT EVERY 3

REACTIONS (1)
  - MEDICATION ERROR [None]
